FAERS Safety Report 5630537-9 (Version None)
Quarter: 2008Q1

REPORT INFORMATION
  Report Type: 
  Country: None (occurrence: None)
  Receive Date: 20080219
  Receipt Date: 20080218
  Transmission Date: 20080703
  Serious: Yes (Other)
  Sender: FDA-Public Use
  Company Number: A0710238A

PATIENT
  Age: 68 Year
  Sex: Female
  Weight: 90.9 kg

DRUGS (5)
  1. ALLI [Suspect]
     Indication: WEIGHT CONTROL
     Route: 048
     Dates: start: 20080201, end: 20080215
  2. ASCORBIC ACID [Concomitant]
  3. CENTRUM SILVER [Concomitant]
  4. PAROXETINE HCL [Concomitant]
  5. ANTI HYPERTENSIVE [Concomitant]

REACTIONS (3)
  - FATIGUE [None]
  - HAEMATOCHEZIA [None]
  - RECTAL HAEMORRHAGE [None]
